FAERS Safety Report 8398092-0 (Version None)
Quarter: 2012Q2

REPORT INFORMATION
  Report Type: 
  Country: None (occurrence: None)
  Receive Date: 20120531
  Receipt Date: 20120524
  Transmission Date: 20120825
  Serious: Yes (Hospitalization)
  Sender: FDA-Public Use
  Company Number: US-MYLANLABS-2012S1005520

PATIENT
  Age: 39 Year
  Sex: Male
  Weight: 73.94 kg

DRUGS (10)
  1. FENTANYL-100 [Suspect]
     Indication: ARTHRITIS
     Dosage: CHANGED Q48H
     Route: 062
     Dates: start: 20110906, end: 20120309
  2. GABAPENTIN [Concomitant]
     Route: 048
  3. FENTANYL-100 [Suspect]
     Indication: INTERVERTEBRAL DISC DEGENERATION
     Dosage: CHANGED Q48H
     Route: 062
     Dates: start: 20110906, end: 20120309
  4. CYCLOBENZAPRINE [Concomitant]
     Route: 048
  5. FENTANYL-100 [Suspect]
     Indication: PAIN
     Dosage: CHANGED Q48H
     Route: 062
     Dates: start: 20110906, end: 20120309
  6. FENTANYL-100 [Suspect]
     Indication: OSTEOARTHRITIS
     Dosage: CHANGED Q48H
     Route: 062
     Dates: start: 20110906, end: 20120309
  7. FENTANYL-100 [Suspect]
     Indication: BACK PAIN
     Dosage: CHANGED Q48H
     Route: 062
     Dates: start: 20110906, end: 20120309
  8. FENTANYL-100 [Suspect]
     Indication: SPONDYLITIS
     Dosage: CHANGED Q48H
     Route: 062
     Dates: start: 20110906, end: 20120309
  9. KLONOPIN [Concomitant]
  10. OXYCODONE HCL [Concomitant]
     Indication: BREAKTHROUGH PAIN
     Dosage: EVERY 4 - 6 HOURS

REACTIONS (12)
  - DEHYDRATION [None]
  - FLATULENCE [None]
  - WEIGHT DECREASED [None]
  - CONSTIPATION [None]
  - DYSPEPSIA [None]
  - PAIN [None]
  - DRY MOUTH [None]
  - DRUG WITHDRAWAL SYNDROME [None]
  - SENSATION OF PRESSURE [None]
  - DECREASED APPETITE [None]
  - DRUG EFFECT DECREASED [None]
  - ABDOMINAL DISCOMFORT [None]
